FAERS Safety Report 13902740 (Version 1)
Quarter: 2017Q3

REPORT INFORMATION
  Report Type: Spontaneous
  Country: US (occurrence: US)
  Receive Date: 20170824
  Receipt Date: 20170824
  Transmission Date: 20171127
  Serious: Yes (Hospitalization)
  Sender: FDA-Public Use
  Company Number: US-ROCHE-1978875

PATIENT
  Age: 58 Year
  Sex: Male

DRUGS (2)
  1. OCREVUS [Suspect]
     Active Substance: OCRELIZUMAB
     Indication: SECONDARY PROGRESSIVE MULTIPLE SCLEROSIS
     Dosage: 2X300MG INFUSIONS 14 DAYS APART FOR THE 1ST DOSE
     Route: 065
     Dates: start: 20170626
  2. OCREVUS [Suspect]
     Active Substance: OCRELIZUMAB
     Route: 065
     Dates: start: 20170712

REACTIONS (8)
  - Acute respiratory failure [Unknown]
  - Encephalopathy [Recovered/Resolved]
  - Unresponsive to stimuli [Unknown]
  - Confusional state [Unknown]
  - Dizziness [Unknown]
  - Coma [Unknown]
  - Muscular weakness [Unknown]
  - Disorientation [Unknown]

NARRATIVE: CASE EVENT DATE: 20170731
